FAERS Safety Report 23968928 (Version 4)
Quarter: 2024Q3

REPORT INFORMATION
  Report Type: Spontaneous
  Country: US (occurrence: US)
  Receive Date: 20240612
  Receipt Date: 20240917
  Transmission Date: 20241017
  Serious: No
  Sender: BIOGEN
  Company Number: US-BIOGEN-2024BI01262600

PATIENT
  Sex: Female
  Weight: 51.302 kg

DRUGS (2)
  1. VUMERITY [Suspect]
     Active Substance: DIROXIMEL FUMARATE
     Indication: Multiple sclerosis
     Dosage: X 7 DAYS
     Route: 050
     Dates: start: 20240415
  2. VUMERITY [Suspect]
     Active Substance: DIROXIMEL FUMARATE
     Dosage: TAKE 2 CAPSULES TWICE DAILY
     Route: 050
     Dates: start: 20240425

REACTIONS (24)
  - Headache [Not Recovered/Not Resolved]
  - Scar [Unknown]
  - Ocular procedural complication [Unknown]
  - Dizziness [Unknown]
  - Hangover [Unknown]
  - Night sweats [Unknown]
  - Nasal congestion [Unknown]
  - Central nervous system lesion [Unknown]
  - Lymphoedema [Unknown]
  - Hypertension [Unknown]
  - Sleep disorder [Unknown]
  - Parathyroid disorder [Unknown]
  - Blood cholesterol abnormal [Unknown]
  - Multiple sclerosis [Unknown]
  - Blood calcium increased [Unknown]
  - Nausea [Unknown]
  - Abdominal pain upper [Unknown]
  - Hot flush [Unknown]
  - Vomiting [Unknown]
  - Diarrhoea [Recovered/Resolved]
  - Cataract [Unknown]
  - Brain fog [Unknown]
  - Memory impairment [Unknown]
  - Balance disorder [Unknown]

NARRATIVE: CASE EVENT DATE: 20240101
